FAERS Safety Report 5061373-2 (Version None)
Quarter: 2006Q3

REPORT INFORMATION
  Report Type: 
  Country: None (occurrence: None)
  Receive Date: 20060719
  Receipt Date: 20060719
  Transmission Date: 20061208
  Serious: Yes (Hospitalization)
  Sender: FDA-Public Use
  Company Number: None

PATIENT
  Age: 77 Year
  Sex: Male

DRUGS (6)
  1. IBUPROFEN [Suspect]
     Indication: PAIN
     Dosage: OTC
     Dates: start: 19991101
  2. FINASTERIDE [Concomitant]
  3. BACLOFEN [Concomitant]
  4. LORTAB [Concomitant]
  5. AMITRIPTYLINE HCL [Concomitant]
  6. SENOKOT [Concomitant]

REACTIONS (1)
  - GASTRITIS [None]
